FAERS Safety Report 9443888 (Version 1)
Quarter: 2013Q3

REPORT INFORMATION
  Report Type: Spontaneous
  Country: US (occurrence: US)
  Receive Date: 20130806
  Receipt Date: 20130806
  Transmission Date: 20140515
  Serious: No
  Sender: FDA-Public Use
  Company Number: US-JNJFOC-20130715765

PATIENT
  Age: 74 Year
  Sex: Female

DRUGS (13)
  1. IBUPROFEN (UNSPECIFIED) [Suspect]
     Indication: PRODUCT USED FOR UNKNOWN INDICATION
     Dosage: 1-2 TABLETS EVERY 4-6 HOURS AS NEEDED
     Route: 065
  2. PHENAZOPYRIDINE [Suspect]
     Indication: MICTURITION URGENCY
     Dosage: TAKEN FOR 3 WEEKS PRIOR TO ADMISSION
     Route: 048
  3. PHENAZOPYRIDINE [Suspect]
     Indication: BLADDER PAIN
     Dosage: TAKEN FOR 3 WEEKS PRIOR TO ADMISSION
     Route: 048
  4. ENALAPRIL/HYDROCHLOROTHIAZIDE [Suspect]
     Indication: PRODUCT USED FOR UNKNOWN INDICATION
     Dosage: 10/25 MG DAILY
     Route: 065
  5. ALBUTEROL/IPRATROPIUM [Concomitant]
     Indication: DYSPNOEA
     Dosage: 90/18 MCG, 2 INHALATIONS, AS NEEDED
     Route: 055
  6. FORMOTEROL [Concomitant]
     Indication: PRODUCT USED FOR UNKNOWN INDICATION
     Dosage: 20 MCG/2 ML NEBULIZED TWICE DAILY
     Route: 055
  7. BUDESONIDE [Concomitant]
     Indication: PRODUCT USED FOR UNKNOWN INDICATION
     Dosage: 0.5 MG/2 ML NEBULIZED TWICE DAILY
     Route: 055
  8. FISH OIL [Concomitant]
     Indication: PRODUCT USED FOR UNKNOWN INDICATION
     Route: 065
  9. ATORVASTATIN [Concomitant]
     Indication: OFF LABEL USE
  10. ASPIRIN [Concomitant]
     Indication: OFF LABEL USE
     Route: 065
  11. CLONAZEPAM [Concomitant]
     Indication: OFF LABEL USE
     Route: 065
  12. TRAMADOL [Concomitant]
     Indication: OFF LABEL USE
     Route: 065
  13. PROCHLORPERAZINE [Concomitant]
     Indication: PRODUCT USED FOR UNKNOWN INDICATION

REACTIONS (5)
  - Skin discolouration [Recovered/Resolved]
  - Methaemoglobinaemia [Recovered/Resolved]
  - Renal failure acute [Recovered/Resolved]
  - Haemolytic anaemia [Recovered/Resolved]
  - Toxicity to various agents [Recovered/Resolved]
